FAERS Safety Report 23156877 (Version 1)
Quarter: 2023Q4

REPORT INFORMATION
  Report Type: Report from Study
  Country: US (occurrence: US)
  Receive Date: 20231108
  Receipt Date: 20231108
  Transmission Date: 20240110
  Serious: No
  Sender: FDA-Public Use
  Company Number: US-DECIPHERA PHARMACEUTICALS LLC-2023US000998

PATIENT
  Age: 88 Year
  Sex: Female

DRUGS (1)
  1. QINLOCK [Suspect]
     Active Substance: RIPRETINIB
     Indication: Product used for unknown indication
     Dosage: 50 MILLIGRAM, QD (FOR 4 WEEKS THEN TAKE 1 WEEK OFF))
     Route: 048

REACTIONS (2)
  - Alopecia [Unknown]
  - Inappropriate schedule of product administration [Unknown]
